FAERS Safety Report 4472232-8 (Version None)
Quarter: 2004Q4

REPORT INFORMATION
  Report Type: 
  Country: None (occurrence: None)
  Receive Date: 20041012
  Receipt Date: 20041006
  Transmission Date: 20050328
  Serious: Yes (Life-Threatening, Hospitalization, Disabling)
  Sender: FDA-Public Use
  Company Number: US-MERCK-0410USA00944

PATIENT
  Age: 66 Year
  Sex: Male

DRUGS (7)
  1. PLAVIX [Concomitant]
     Route: 065
  2. DIGOXIN [Concomitant]
     Route: 065
  3. NEXIUM [Concomitant]
     Route: 065
  4. LEVOXYL [Concomitant]
     Route: 065
  5. METOPROLOL [Concomitant]
     Route: 065
  6. ALTACE [Concomitant]
     Route: 065
  7. VIOXX [Suspect]
     Indication: ARTHRITIS
     Route: 048
     Dates: start: 19990101, end: 20040101

REACTIONS (1)
  - MYOCARDIAL INFARCTION [None]
